FAERS Safety Report 4781406-8 (Version None)
Quarter: 2005Q3

REPORT INFORMATION
  Report Type: 
  Country: None (occurrence: None)
  Receive Date: 20050928
  Receipt Date: 20050622
  Transmission Date: 20060218
  Serious: Yes (Hospitalization)
  Sender: FDA-Public Use
  Company Number: US-MERCK-0506USA03318

PATIENT
  Age: 72 Year
  Sex: Male
  Weight: 87 kg

DRUGS (16)
  1. VIOXX [Suspect]
     Indication: BACK PAIN
     Route: 048
     Dates: start: 20000119, end: 20040901
  2. VIOXX [Suspect]
     Indication: RHEUMATOID ARTHRITIS
     Route: 048
     Dates: start: 20000119, end: 20040901
  3. KLOR-CON [Concomitant]
     Route: 065
  4. FUROSEMIDE [Concomitant]
     Indication: OEDEMA PERIPHERAL
     Route: 065
     Dates: start: 19910225
  5. PENTOXIFYLLINE [Concomitant]
     Route: 065
  6. INSULIN [Concomitant]
     Indication: DIABETES MELLITUS
     Route: 065
  7. HYDROCORT [Concomitant]
     Route: 065
  8. ENDOCET [Concomitant]
     Route: 065
  9. NORVASC [Concomitant]
     Route: 065
     Dates: start: 19990226
  10. AMITRIPTYLINE HYDROCHLORIDE [Concomitant]
     Route: 065
  11. ALLEGRA [Concomitant]
     Route: 065
  12. NASONEX [Concomitant]
     Route: 065
  13. AMARYL [Concomitant]
     Route: 065
  14. ALLOPURINOL [Concomitant]
     Route: 065
  15. PERCOCET [Concomitant]
     Indication: RHEUMATOID ARTHRITIS
     Route: 065
     Dates: start: 19700101
  16. DICLOFENAC [Concomitant]
     Route: 065

REACTIONS (38)
  - ACUTE MYOCARDIAL INFARCTION [None]
  - ANAEMIA [None]
  - ARTHRITIS INFECTIVE [None]
  - ATRIAL FIBRILLATION [None]
  - ATRIAL FLUTTER [None]
  - BLADDER MASS [None]
  - BUNDLE BRANCH BLOCK LEFT [None]
  - BUNDLE BRANCH BLOCK RIGHT [None]
  - BURSITIS [None]
  - CARDIOMEGALY [None]
  - CHRONIC OBSTRUCTIVE PULMONARY DISEASE [None]
  - CONFUSIONAL STATE [None]
  - DELIRIUM [None]
  - DIABETIC NEUROPATHY [None]
  - DILATATION ATRIAL [None]
  - DISORIENTATION [None]
  - DIVERTICULITIS INTESTINAL HAEMORRHAGIC [None]
  - DRUG HYPERSENSITIVITY [None]
  - FLANK PAIN [None]
  - HYPOSPADIAS [None]
  - JOINT SWELLING [None]
  - LOWER GASTROINTESTINAL HAEMORRHAGE [None]
  - NEUROPATHY PERIPHERAL [None]
  - PARANOIA [None]
  - PARANOID PERSONALITY DISORDER [None]
  - PULMONARY CONGESTION [None]
  - RENAL ARTERY STENOSIS [None]
  - RENAL FAILURE CHRONIC [None]
  - RESTLESS LEGS SYNDROME [None]
  - RESTLESSNESS [None]
  - RHINITIS [None]
  - SHIFT TO THE LEFT [None]
  - SLEEP APNOEA SYNDROME [None]
  - SUPRAPUBIC PAIN [None]
  - URINARY TRACT INFECTION [None]
  - URINARY TRACT INFECTION ENTEROCOCCAL [None]
  - VENTRICULAR EXTRASYSTOLES [None]
  - WHITE BLOOD CELL COUNT INCREASED [None]
